FAERS Safety Report 16106861 (Version 1)
Quarter: 2019Q1

REPORT INFORMATION
  Report Type: Spontaneous
  Country: US (occurrence: US)
  Receive Date: 20190322
  Receipt Date: 20190322
  Transmission Date: 20190418
  Serious: No
  Sender: FDA-Public Use
  Company Number: US-B.I. PHARMACEUTICALS,INC./RIDGEFIELD-2019-BI-011204

PATIENT
  Age: 55 Year
  Sex: Male

DRUGS (2)
  1. SYNJARDY XR [Suspect]
     Active Substance: EMPAGLIFLOZIN\METFORMIN HYDROCHLORIDE
     Indication: TYPE 2 DIABETES MELLITUS
     Dosage: ONCE A DAY;  FORM STRENGTH: 5 MG / 1000 MG; FORMULATION: TABLET ACTION(S) TAKEN: DOSE INCREASED
     Route: 048
     Dates: start: 20190131, end: 201902
  2. SYNJARDY XR [Suspect]
     Active Substance: EMPAGLIFLOZIN\METFORMIN HYDROCHLORIDE
     Dosage: ONCE A DAY; FORM STRENGTH: 12.5 MG / 1000 MG; FORMULATION: TABLET ACTION(S) TAKEN: DOSE NOT CHANGED
     Route: 048
     Dates: start: 20190301

REACTIONS (4)
  - Nausea [Not Recovered/Not Resolved]
  - Product residue present [Unknown]
  - Vomiting [Unknown]
  - Abnormal faeces [Unknown]

NARRATIVE: CASE EVENT DATE: 201903
